FAERS Safety Report 7387080-9 (Version None)
Quarter: 2011Q1

REPORT INFORMATION
  Report Type: 
  Country: None (occurrence: None)
  Receive Date: 20110331
  Receipt Date: 20110322
  Transmission Date: 20110831
  Serious: Yes (Hospitalization, Disabling, Other)
  Sender: FDA-Public Use
  Company Number: US-MERCK-1001USA00984

PATIENT
  Age: 48 Year
  Sex: Female
  Weight: 66 kg

DRUGS (5)
  1. FOSAMAX [Suspect]
     Route: 048
     Dates: start: 20080128, end: 20080201
  2. ESTROGENS (UNSPECIFIED) [Concomitant]
     Indication: HORMONE THERAPY
     Route: 065
     Dates: start: 19940101
  3. BONIVA [Suspect]
     Indication: OSTEOPENIA
     Route: 065
     Dates: start: 20050616, end: 20080101
  4. FOSAMAX [Suspect]
     Route: 048
     Dates: start: 20010327, end: 20050601
  5. FOSAMAX [Suspect]
     Indication: OSTEOPENIA
     Route: 048
     Dates: start: 19950101, end: 20010301

REACTIONS (58)
  - ANAEMIA POSTOPERATIVE [None]
  - FRACTURE NONUNION [None]
  - STRESS FRACTURE [None]
  - MENTAL DISORDER [None]
  - INFLUENZA [None]
  - MUSCLE STRAIN [None]
  - BLOOD CHOLESTEROL INCREASED [None]
  - DEVICE FAILURE [None]
  - SPINAL COLUMN STENOSIS [None]
  - LOW TURNOVER OSTEOPATHY [None]
  - GASTRITIS [None]
  - ASTHENIA [None]
  - DEPRESSION [None]
  - WOUND DRAINAGE [None]
  - WEIGHT INCREASED [None]
  - VITAMIN D DEFICIENCY [None]
  - BLOOD SODIUM DECREASED [None]
  - SCIATICA [None]
  - ARTHRALGIA [None]
  - ROAD TRAFFIC ACCIDENT [None]
  - DELIRIUM [None]
  - INTERVERTEBRAL DISC DISORDER [None]
  - GROIN PAIN [None]
  - URINARY TRACT INFECTION [None]
  - PARANOID PERSONALITY DISORDER [None]
  - NERVE ROOT COMPRESSION [None]
  - NAUSEA [None]
  - BACK PAIN [None]
  - INJECTION SITE NECROSIS [None]
  - INAPPROPRIATE SCHEDULE OF DRUG ADMINISTRATION [None]
  - DRUG HYPERSENSITIVITY [None]
  - PAIN IN EXTREMITY [None]
  - HYPOTHYROIDISM [None]
  - HYPERLIPIDAEMIA [None]
  - WRIST FRACTURE [None]
  - LATEX ALLERGY [None]
  - INSOMNIA [None]
  - PSYCHOSIS POSTOPERATIVE [None]
  - OSTEONECROSIS [None]
  - INTERVERTEBRAL DISC DEGENERATION [None]
  - FATIGUE [None]
  - FIBROMYALGIA [None]
  - TRISMUS [None]
  - ANXIETY [None]
  - FEMUR FRACTURE [None]
  - BONE DISORDER [None]
  - HERPES ZOSTER [None]
  - HEPARIN-INDUCED THROMBOCYTOPENIA [None]
  - PELVIC PAIN [None]
  - PARAESTHESIA [None]
  - BIPOLAR DISORDER [None]
  - BLOOD ALKALINE PHOSPHATASE INCREASED [None]
  - OSTEOPOROSIS [None]
  - SLEEP DISORDER [None]
  - MUSCLE TIGHTNESS [None]
  - LORDOSIS [None]
  - JOINT SPRAIN [None]
  - ATELECTASIS [None]
